FAERS Safety Report 13339529 (Version 3)
Quarter: 2018Q2

REPORT INFORMATION
  Report Type: Report from Study
  Country: US (occurrence: US)
  Receive Date: 20170315
  Receipt Date: 20180405
  Transmission Date: 20180711
  Serious: Yes (Death, Hospitalization)
  Sender: FDA-Public Use
  Company Number: US-ACTELION-A-NJ2016-146243

PATIENT
  Age: 67 Year
  Sex: Female
  Weight: 230 kg

DRUGS (2)
  1. ADCIRCA [Suspect]
     Active Substance: TADALAFIL
     Indication: PULMONARY HYPERTENSION
     Dosage: 40 MG, QD
     Route: 065
     Dates: start: 20150201
  2. OPSUMIT [Suspect]
     Active Substance: MACITENTAN
     Indication: PULMONARY HYPERTENSION
     Dosage: 10 MG, QD
     Route: 048
     Dates: start: 20151228

REACTIONS (9)
  - Cardiac failure congestive [Unknown]
  - Death [Fatal]
  - Fluid overload [Recovered/Resolved]
  - Anaemia [Recovered/Resolved]
  - Haematochezia [Unknown]
  - Rectal haemorrhage [Unknown]
  - Diverticulum [Unknown]
  - Packed red blood cell transfusion [Unknown]
  - Renal failure [Unknown]

NARRATIVE: CASE EVENT DATE: 20161113
